FAERS Safety Report 25516834 (Version 1)
Quarter: 2025Q3

REPORT INFORMATION
  Report Type: Spontaneous
  Country: US (occurrence: US)
  Receive Date: 20250704
  Receipt Date: 20250704
  Transmission Date: 20251021
  Serious: No
  Sender: RADIUS PHARM
  Company Number: US-RADIUS HEALTH INC.-US-RADIUS-25046250

PATIENT
  Sex: Female
  Weight: 53.152 kg

DRUGS (1)
  1. TYMLOS [Suspect]
     Active Substance: ABALOPARATIDE
     Indication: Osteoporosis
     Dosage: 80MCG UNDER THE SKIN DAILY
     Route: 058

REACTIONS (3)
  - Weight decreased [Unknown]
  - Feeling abnormal [Unknown]
  - Nausea [Unknown]
